FAERS Safety Report 24132897 (Version 5)
Quarter: 2024Q3

REPORT INFORMATION
  Report Type: Spontaneous
  Country: BR (occurrence: BR)
  Receive Date: 20240724
  Receipt Date: 20240816
  Transmission Date: 20241017
  Serious: No
  Sender: SANDOZ
  Company Number: BR-002147023-NVSC2024BR149278

PATIENT
  Age: 84 Year
  Sex: Male

DRUGS (7)
  1. AZOPT [Suspect]
     Active Substance: BRINZOLAMIDE
     Indication: Glaucoma
     Dosage: UNK (5 ML BOTTLE)
     Route: 065
  2. MIRTAZAPINE [Suspect]
     Active Substance: MIRTAZAPINE
     Indication: Product used for unknown indication
     Dosage: UNK
     Route: 065
  3. QUETIAPINE [Suspect]
     Active Substance: QUETIAPINE
     Indication: Product used for unknown indication
     Dosage: UNK
     Route: 065
  4. TIMOLOL [Suspect]
     Active Substance: TIMOLOL
     Indication: Product used for unknown indication
     Dosage: UNK
     Route: 065
  5. LATANOPROST [Concomitant]
     Active Substance: LATANOPROST
     Indication: Product used for unknown indication
     Dosage: UNK, QN
     Route: 065
  6. SYSTANE (HYPROMELLOSE 2910 (4000 MPA.S)) [Concomitant]
     Active Substance: HYPROMELLOSE 2910 (4000 MPA.S)
     Indication: Eye lubrication therapy
     Dosage: UNK
     Route: 065
  7. SYSTANE (HYPROMELLOSE 2910 (4000 MPA.S)) [Concomitant]
     Active Substance: HYPROMELLOSE 2910 (4000 MPA.S)
     Indication: Product used for unknown indication

REACTIONS (3)
  - Intraocular pressure test abnormal [Recovered/Resolved]
  - Eye disorder [Recovered/Resolved]
  - Inappropriate schedule of product administration [Unknown]
